FAERS Safety Report 16820405 (Version 6)
Quarter: 2021Q2

REPORT INFORMATION
  Report Type: Report from Study
  Country: US (occurrence: US)
  Receive Date: 20190918
  Receipt Date: 20210406
  Transmission Date: 20210716
  Serious: Yes (Hospitalization, Other)
  Sender: FDA-Public Use
  Company Number: US-B.I. PHARMACEUTICALS,INC./RIDGEFIELD-2019-BI-102341

PATIENT
  Age: 69 Year
  Sex: Male

DRUGS (2)
  1. OFEV [Suspect]
     Active Substance: NINTEDANIB
     Indication: INTERSTITIAL LUNG DISEASE
  2. OFEV [Suspect]
     Active Substance: NINTEDANIB
     Indication: PULMONARY FIBROSIS
     Route: 048
     Dates: start: 20190901

REACTIONS (9)
  - Diverticulitis [Unknown]
  - Pain [Unknown]
  - Wrong product administered [Recovered/Resolved]
  - Nasopharyngitis [Unknown]
  - Abdominal pain upper [Unknown]
  - Colonoscopy [Unknown]
  - Cough [Unknown]
  - Flatulence [Unknown]
  - Oesophageal infection [Unknown]

NARRATIVE: CASE EVENT DATE: 20190901
